FAERS Safety Report 8326012-3 (Version None)
Quarter: 2012Q2

REPORT INFORMATION
  Report Type: 
  Country: None (occurrence: None)
  Receive Date: 20120501
  Receipt Date: 20100525
  Transmission Date: 20120825
  Serious: No
  Sender: FDA-Public Use
  Company Number: US-TEVA-2010002921

PATIENT
  Sex: Female
  Weight: 43.13 kg

DRUGS (4)
  1. NUVIGIL [Suspect]
     Indication: DEPRESSION
     Route: 048
     Dates: start: 20100501
  2. TRAZODONE HCL [Concomitant]
  3. KLONOPIN [Concomitant]
     Dates: start: 19920101
  4. PRESTIG [Concomitant]
     Dates: start: 20100501

REACTIONS (5)
  - PAIN IN JAW [None]
  - HEADACHE [None]
  - AGITATION [None]
  - ANXIETY [None]
  - BRUXISM [None]
